FAERS Safety Report 17169855 (Version 3)
Quarter: 2023Q2

REPORT INFORMATION
  Report Type: Spontaneous
  Country: US (occurrence: US)
  Receive Date: 20191218
  Receipt Date: 20230406
  Transmission Date: 20230721
  Serious: No
  Sender: FDA-Public Use
  Company Number: US-PFIZER INC-2019543704

PATIENT
  Age: 48 Year
  Sex: Female
  Weight: 49.887 kg

DRUGS (38)
  1. DOCETAXEL [Suspect]
     Active Substance: DOCETAXEL
     Indication: Breast cancer metastatic
     Dosage: 130 MG (AT 75 MG/M2), SINGLE (FOR 1 DAY)
     Route: 042
     Dates: start: 20110202, end: 20110202
  2. DOCETAXEL [Suspect]
     Active Substance: DOCETAXEL
     Dosage: 130 MG (AT 75 MG/M2), SINGLE (FOR 1 DAY)
     Route: 042
     Dates: start: 20110223, end: 20110223
  3. DOCETAXEL [Suspect]
     Active Substance: DOCETAXEL
     Dosage: 130 MG (AT 75 MG/M2), SINGLE (FOR 1 DAY)
     Route: 042
     Dates: start: 20110316, end: 20110316
  4. DOCETAXEL [Suspect]
     Active Substance: DOCETAXEL
     Dosage: 130 MG (AT 75 MG/M2), SINGLE (FOR 1 DAY)
     Route: 042
     Dates: start: 20110406, end: 20110406
  5. CYTOXAN [Concomitant]
     Active Substance: CYCLOPHOSPHAMIDE
     Indication: Breast cancer metastatic
     Dosage: 1026 MG (AT 600 MG/M2), SINGLE (FOR 1 DAY)
     Route: 042
     Dates: start: 20110202, end: 20110202
  6. CYTOXAN [Concomitant]
     Active Substance: CYCLOPHOSPHAMIDE
     Dosage: 1026 MG (AT 600 MG/M2), SINGLE (FOR 1 DAY)
     Route: 042
     Dates: start: 20110223, end: 20110223
  7. CYTOXAN [Concomitant]
     Active Substance: CYCLOPHOSPHAMIDE
     Dosage: 1026 MG (AT 600 MG/M2), SINGLE (FOR 1 DAY)
     Route: 042
     Dates: start: 20110316, end: 20110316
  8. CYTOXAN [Concomitant]
     Active Substance: CYCLOPHOSPHAMIDE
     Dosage: 1026 MG (AT 600 MG/M2), SINGLE (FOR 1 DAY)
     Route: 042
     Dates: start: 20110406, end: 20110406
  9. DEXAMETHASONE SODIUM PHOSPHATE [Concomitant]
     Active Substance: DEXAMETHASONE SODIUM PHOSPHATE
     Dosage: 16 MG, SINGLE (FOR 1 DAY)
     Route: 042
     Dates: start: 20110202, end: 20110202
  10. DEXAMETHASONE SODIUM PHOSPHATE [Concomitant]
     Active Substance: DEXAMETHASONE SODIUM PHOSPHATE
     Dosage: 16 MG, SINGLE (FOR 1 DAY)
     Route: 042
     Dates: start: 20110223, end: 20110223
  11. DEXAMETHASONE SODIUM PHOSPHATE [Concomitant]
     Active Substance: DEXAMETHASONE SODIUM PHOSPHATE
     Dosage: 16 MG, SINGLE (FOR 1 DAY)
     Route: 042
     Dates: start: 20110316, end: 20110316
  12. DEXAMETHASONE SODIUM PHOSPHATE [Concomitant]
     Active Substance: DEXAMETHASONE SODIUM PHOSPHATE
     Dosage: 16 MG, SINGLE (FOR 1 DAY)
     Route: 042
     Dates: start: 20110406, end: 20110406
  13. FOSAPREPITANT DIMEGLUMINE [Concomitant]
     Active Substance: FOSAPREPITANT DIMEGLUMINE
     Dosage: 150 MG, SINGLE (FOR 1 DAY)
     Route: 042
     Dates: start: 20110202, end: 20110202
  14. FOSAPREPITANT DIMEGLUMINE [Concomitant]
     Active Substance: FOSAPREPITANT DIMEGLUMINE
     Dosage: 150 MG, SINGLE (FOR 1 DAY)
     Route: 042
     Dates: start: 20110223, end: 20110223
  15. FOSAPREPITANT DIMEGLUMINE [Concomitant]
     Active Substance: FOSAPREPITANT DIMEGLUMINE
     Dosage: 150 MG, SINGLE (FOR 1 DAY)
     Route: 042
     Dates: start: 20110316, end: 20110316
  16. FOSAPREPITANT DIMEGLUMINE [Concomitant]
     Active Substance: FOSAPREPITANT DIMEGLUMINE
     Dosage: 150 MG, SINGLE (FOR 1 DAY)
     Route: 042
     Dates: start: 20110406, end: 20110406
  17. ONDANSETRAN HCL [Concomitant]
     Dosage: 16 MG, SINGLE (FOR 1 DAY)
     Route: 042
     Dates: start: 20110202, end: 20110202
  18. ONDANSETRAN HCL [Concomitant]
     Dosage: 16 MG, SINGLE (FOR 1 DAY)
     Route: 042
     Dates: start: 20110223, end: 20110223
  19. ONDANSETRAN HCL [Concomitant]
     Dosage: 16 MG, SINGLE (FOR 1 DAY)
     Route: 042
     Dates: start: 20110316, end: 20110316
  20. ONDANSETRAN HCL [Concomitant]
     Dosage: 16 MG, SINGLE (FOR 1 DAY)
     Route: 042
     Dates: start: 20110406, end: 20110406
  21. PEPCID [Concomitant]
     Active Substance: FAMOTIDINE
     Dosage: 20 MG (OF 10 MG/ML), SINGLE (FOR 1 DAY)
     Route: 042
     Dates: start: 20110202, end: 20110202
  22. PEPCID [Concomitant]
     Active Substance: FAMOTIDINE
     Dosage: 20 MG (OF 10 MG/ML), SINGLE (FOR 1 DAY)
     Route: 042
     Dates: start: 20110223, end: 20110223
  23. PEPCID [Concomitant]
     Active Substance: FAMOTIDINE
     Dosage: 20 MG (OF 10 MG/ML), SINGLE (FOR 1 DAY)
     Route: 042
     Dates: start: 20110316, end: 20110316
  24. PEPCID [Concomitant]
     Active Substance: FAMOTIDINE
     Dosage: 20 MG (OF 10 MG/ML), SINGLE (FOR 1 DAY)
     Route: 042
     Dates: start: 20110406, end: 20110406
  25. SODIUM CHLORIDE [Concomitant]
     Active Substance: SODIUM CHLORIDE
     Dosage: 1000 ML (OF 0.9%), SINGLE (FOR 1 DAY)
     Route: 042
     Dates: start: 20110202, end: 20110202
  26. SODIUM CHLORIDE [Concomitant]
     Active Substance: SODIUM CHLORIDE
     Dosage: 1000 ML (OF 0.9%), SINGLE (FOR 1 DAY)
     Route: 042
     Dates: start: 20110223, end: 20110223
  27. SODIUM CHLORIDE [Concomitant]
     Active Substance: SODIUM CHLORIDE
     Dosage: 1000 ML (OF 0.9%), SINGLE (FOR 1 DAY)
     Route: 042
     Dates: start: 20110316, end: 20110316
  28. SODIUM CHLORIDE [Concomitant]
     Active Substance: SODIUM CHLORIDE
     Dosage: 1000 ML (OF 0.9%), SINGLE (FOR 1 DAY)
     Route: 042
     Dates: start: 20110406, end: 20110406
  29. HEPARIN LOCK FLUSH [Concomitant]
     Active Substance: HEPARIN SODIUM
     Dosage: 5 ML (OF 100 UNITS/ML), SINGLE (FOR 1 DAY)
     Route: 042
     Dates: start: 20110202, end: 20110202
  30. HEPARIN LOCK FLUSH [Concomitant]
     Active Substance: HEPARIN SODIUM
     Dosage: 5 ML (OF 100 UNITS/ML), SINGLE (FOR 1 DAY)
     Route: 042
     Dates: start: 20110223, end: 20110223
  31. HEPARIN LOCK FLUSH [Concomitant]
     Active Substance: HEPARIN SODIUM
     Dosage: 5 ML (OF 100 UNITS/ML), SINGLE (FOR 1 DAY)
     Route: 042
     Dates: start: 20110316, end: 20110316
  32. HEPARIN LOCK FLUSH [Concomitant]
     Active Substance: HEPARIN SODIUM
     Dosage: 5 ML (OF 100 UNITS/ML), SINGLE (FOR 1 DAY)
     Route: 042
     Dates: start: 20110406, end: 20110406
  33. SODIUM CHLORIDE [Concomitant]
     Active Substance: SODIUM CHLORIDE
     Dosage: 30 ML (OF 0.9%), SINGLE (INJECTION ONCE)
     Dates: start: 20110202, end: 20110202
  34. SODIUM CHLORIDE [Concomitant]
     Active Substance: SODIUM CHLORIDE
     Dosage: 20 ML (OF 0.9%), SINGLE (INJECTION ONCE)
     Dates: start: 20110223, end: 20110223
  35. SODIUM CHLORIDE [Concomitant]
     Active Substance: SODIUM CHLORIDE
     Dosage: 20 ML (OF 0.9%), SINGLE (INJECTION ONCE)
     Dates: start: 20110316, end: 20110316
  36. SODIUM CHLORIDE [Concomitant]
     Active Substance: SODIUM CHLORIDE
     Dosage: 10 ML (OF 0.9%), SINGLE (INJECTION ONCE)
     Dates: start: 20110406, end: 20110406
  37. LISINOPRIL [Concomitant]
     Active Substance: LISINOPRIL
     Dosage: UNK
     Dates: start: 2014, end: 2017
  38. NEOSAR [Concomitant]
     Active Substance: CYCLOPHOSPHAMIDE
     Dosage: UNK

REACTIONS (7)
  - Emotional distress [Unknown]
  - Anxiety [Unknown]
  - Alopecia [Not Recovered/Not Resolved]
  - Hair texture abnormal [Not Recovered/Not Resolved]
  - Hair colour changes [Not Recovered/Not Resolved]
  - Hair disorder [Not Recovered/Not Resolved]
  - Madarosis [Not Recovered/Not Resolved]

NARRATIVE: CASE EVENT DATE: 20120101
